FAERS Safety Report 5695806-5 (Version None)
Quarter: 2008Q2

REPORT INFORMATION
  Report Type: 
  Country: None (occurrence: None)
  Receive Date: 20080407
  Receipt Date: 20080325
  Transmission Date: 20081010
  Serious: Yes (Hospitalization, Other)
  Sender: FDA-Public Use
  Company Number: US-ROCHE-545244

PATIENT
  Sex: Male
  Weight: 99.8 kg

DRUGS (16)
  1. PEGASYS [Suspect]
     Route: 058
     Dates: start: 20061024
  2. PEGASYS [Suspect]
     Dosage: THERAPY RESTARTED, FORM: PRE-FILLED SYRINGE
     Route: 058
     Dates: start: 20071022, end: 20080310
  3. RIBAVIRIN [Suspect]
     Route: 065
     Dates: start: 20061024
  4. RIBAVIRIN [Suspect]
     Route: 065
     Dates: start: 20071022, end: 20080310
  5. PAXIL [Concomitant]
  6. BENADRYL [Concomitant]
  7. BENADRYL [Concomitant]
  8. BENADRYL [Concomitant]
  9. BENADRYL [Concomitant]
  10. BENADRYL [Concomitant]
  11. BENADRYL [Concomitant]
  12. BENADRYL [Concomitant]
  13. BENADRYL [Concomitant]
  14. BENADRYL [Concomitant]
  15. ACTOS [Concomitant]
  16. DIOVAN [Concomitant]

REACTIONS (8)
  - ANAEMIA [None]
  - CONVULSION [None]
  - DIABETES MELLITUS [None]
  - FATIGUE [None]
  - HAEMOLYTIC ANAEMIA [None]
  - INJECTION SITE PAIN [None]
  - LOSS OF CONSCIOUSNESS [None]
  - VIRAL LOAD INCREASED [None]
